FAERS Safety Report 4608979-X (Version None)
Quarter: 2005Q1

REPORT INFORMATION
  Report Type: 
  Country: None (occurrence: None)
  Receive Date: 20050311
  Receipt Date: 20050304
  Transmission Date: 20050727
  Serious: Yes (Life-Threatening)
  Sender: FDA-Public Use
  Company Number: 20050208VANCO0088

PATIENT
  Age: 81 Year
  Sex: Female
  Weight: 50 kg

DRUGS (8)
  1. VANCOCIN HCL [Suspect]
     Indication: STAPHYLOCOCCAL INFECTION
     Dosage: 1000 MG (250 MG, 4 TIMES DAILY), ORAL
     Route: 048
     Dates: start: 20050121
  2. COLCHICINE (COLCHICINE) [Suspect]
     Indication: GOUT
     Dosage: 2 MG (0.5 MG,4 TIMES DAILY), ORAL; 1MG
     Route: 048
     Dates: start: 20050118, end: 20050125
  3. COLCHICINE (COLCHICINE) [Suspect]
     Indication: GOUT
     Dosage: 2 MG (0.5 MG,4 TIMES DAILY), ORAL; 1MG
     Route: 048
     Dates: start: 20050125, end: 20050127
  4. ALLOPURINOL [Concomitant]
  5. DIART (AZOSEMIDE) [Concomitant]
  6. ASPIRIN [Concomitant]
  7. FAMOTIDINE [Concomitant]
  8. PRAVASTATIN SODIUM [Concomitant]

REACTIONS (6)
  - APLASTIC ANAEMIA [None]
  - CULTURE STOOL POSITIVE [None]
  - DIARRHOEA [None]
  - MEDICATION ERROR [None]
  - RASH [None]
  - STAPHYLOCOCCAL INFECTION [None]
